FAERS Safety Report 8853319 (Version 1)
Quarter: 2012Q4

REPORT INFORMATION
  Report Type: 
  Country: US (occurrence: US)
  Receive Date: 20121022
  Receipt Date: 20121022
  Transmission Date: 20130627
  Serious: Yes (Hospitalization)
  Sender: FDA-Public Use
  Company Number: US-MERCK-1210USA008078

PATIENT
  Age: 42 Year
  Sex: Female

DRUGS (2)
  1. SAPHRIS [Suspect]
     Indication: BIPOLAR DISORDER
     Dosage: 10 MG 1 STANDARD PACKAGE BOTTLE OF 30
     Dates: start: 20120922, end: 2012
  2. XANAX [Concomitant]

REACTIONS (1)
  - Drug ineffective [Unknown]
